FAERS Safety Report 8388198-4 (Version None)
Quarter: 2012Q2

REPORT INFORMATION
  Report Type: 
  Country: None (occurrence: None)
  Receive Date: 20120525
  Receipt Date: 20120518
  Transmission Date: 20120825
  Serious: Yes (Other)
  Sender: FDA-Public Use
  Company Number: US-US-EMD SERONO, INC.-7134336

PATIENT
  Sex: Female

DRUGS (3)
  1. REBIF [Suspect]
     Indication: PRODUCT USED FOR UNKNOWN INDICATION
     Route: 058
     Dates: start: 20120427
  2. TYLENOL [Concomitant]
     Indication: PREMEDICATION
  3. FATIGUE MEDICATION [Concomitant]
     Indication: FATIGUE

REACTIONS (2)
  - VOMITING [None]
  - KIDNEY INFECTION [None]
